FAERS Safety Report 4986751-9 (Version None)
Quarter: 2006Q2

REPORT INFORMATION
  Report Type: 
  Country: None (occurrence: None)
  Receive Date: 20060428
  Receipt Date: 20060328
  Transmission Date: 20061013
  Serious: Yes (Hospitalization)
  Sender: FDA-Public Use
  Company Number: DE-MERCK-0603DEU00184

PATIENT
  Age: 78 Year
  Sex: Female
  Weight: 59 kg

DRUGS (5)
  1. VYTORIN [Suspect]
     Indication: LIPOPROTEIN (A) INCREASED
     Route: 048
     Dates: start: 20050101
  2. VYTORIN [Suspect]
     Route: 048
     Dates: start: 20050101
  3. VALSARTAN [Concomitant]
     Route: 048
     Dates: start: 20010101
  4. METOPROLOL SUCCINATE [Concomitant]
     Route: 048
     Dates: start: 20010101
  5. HYDROCHLOROTHIAZIDE AND TRIAMTERENE [Concomitant]
     Route: 065
     Dates: start: 20010101

REACTIONS (4)
  - BLOOD AMYLASE INCREASED [None]
  - EXTRASYSTOLES [None]
  - TACHYCARDIA PAROXYSMAL [None]
  - TRANSAMINASES INCREASED [None]
